FAERS Safety Report 13923287 (Version 1)
Quarter: 2017Q3

REPORT INFORMATION
  Report Type: Report from Study
  Country: CA (occurrence: CA)
  Receive Date: 20170831
  Receipt Date: 20170831
  Transmission Date: 20171127
  Serious: Yes (Hospitalization)
  Sender: FDA-Public Use
  Company Number: CA-ROCHE-1983675

PATIENT
  Sex: Female

DRUGS (23)
  1. CITALOPRAM [Concomitant]
     Active Substance: CITALOPRAM HYDROBROMIDE
     Dosage: STOPPED NOS
     Route: 065
  2. HUMALOG [Concomitant]
     Active Substance: INSULIN LISPRO
  3. ACETYLSALICYLIC ACID [Concomitant]
     Active Substance: ASPIRIN
  4. ACTONEL [Concomitant]
     Active Substance: RISEDRONATE SODIUM
     Dosage: Q MONTHLY
     Route: 065
  5. CELEXA [Concomitant]
     Active Substance: CITALOPRAM HYDROBROMIDE
     Dosage: STOPPED NOS
     Route: 065
  6. NAPROXEN. [Concomitant]
     Active Substance: NAPROXEN
     Route: 065
  7. GENOTROPIN [Concomitant]
     Active Substance: SOMATROPIN
  8. CELEBREX [Concomitant]
     Active Substance: CELECOXIB
     Dosage: STOPPED NOS
     Route: 065
  9. CELLCEPT [Concomitant]
     Active Substance: MYCOPHENOLATE MOFETIL\MYCOPHENOLATE MOFETIL HYDROCHLORIDE
     Dosage: STOPPED NOS
     Route: 065
  10. ACLASTA [Concomitant]
     Active Substance: ZOLEDRONIC ACID
  11. PREDNISONE. [Concomitant]
     Active Substance: PREDNISONE
  12. WELLBUTRIN [Concomitant]
     Active Substance: BUPROPION HYDROCHLORIDE
  13. RANITIDINE. [Concomitant]
     Active Substance: RANITIDINE
  14. ZOPICLONE [Concomitant]
     Active Substance: ZOPICLONE
     Dosage: STOPPED NOS
     Route: 065
  15. MOBICOX [Concomitant]
     Active Substance: MELOXICAM
     Dosage: STOPPED NOS
     Route: 065
  16. NEXIUM [Concomitant]
     Active Substance: ESOMEPRAZOLE MAGNESIUM
  17. LIPIDIL [Concomitant]
     Active Substance: FENOFIBRATE
     Dosage: STOPPED NOS
     Route: 065
  18. RITUXAN [Suspect]
     Active Substance: RITUXIMAB
     Indication: GRANULOMATOSIS WITH POLYANGIITIS
     Dosage: FREQUENCY:  DAY 1 AND DAY 15?LAST RITUXAN INFUSION RECEIVED ON 30-JUN-2015.
     Route: 042
     Dates: start: 20110427
  19. AZATHIOPRINE. [Concomitant]
     Active Substance: AZATHIOPRINE
  20. DESMOPRESSIN [Concomitant]
     Active Substance: DESMOPRESSIN
     Dosage: STOPPED NOS
     Route: 065
  21. PENTAMIDINE [Concomitant]
     Active Substance: PENTAMIDINE
     Route: 065
  22. SYMBICORT [Concomitant]
     Active Substance: BUDESONIDE\FORMOTEROL FUMARATE DIHYDRATE
     Dosage: STOPPED NOS
     Route: 065
  23. LEVOTHYROXINE. [Concomitant]
     Active Substance: LEVOTHYROXINE
     Dosage: STOPPED NOS
     Route: 065

REACTIONS (5)
  - Paresis [Recovering/Resolving]
  - Gastrointestinal haemorrhage [Unknown]
  - Spinal disorder [Recovered/Resolved]
  - Spinal fracture [Unknown]
  - Lower limb fracture [Unknown]

NARRATIVE: CASE EVENT DATE: 2016
